FAERS Safety Report 10534318 (Version 1)
Quarter: 2014Q4

REPORT INFORMATION
  Report Type: Spontaneous
  Country: IT (occurrence: IT)
  Receive Date: 20141022
  Receipt Date: 20141022
  Transmission Date: 20150529
  Serious: Yes (Other)
  Sender: FDA-Public Use
  Company Number: IT-WATSON-2014-22297

PATIENT
  Age: 42 Year
  Sex: Female

DRUGS (1)
  1. TAMOXIFEN (UNKNOWN) [Suspect]
     Active Substance: TAMOXIFEN
     Indication: INTRADUCTAL PROLIFERATIVE BREAST LESION
     Dosage: 20 MG, DAILY
     Route: 065

REACTIONS (9)
  - Major depression [Recovered/Resolved]
  - Weight increased [None]
  - Refusal of treatment by patient [None]
  - Middle insomnia [None]
  - Headache [None]
  - Initial insomnia [None]
  - Psychomotor retardation [None]
  - Hot flush [Unknown]
  - Impaired work ability [None]
